FAERS Safety Report 8086549-1 (Version None)
Quarter: 2012Q1

REPORT INFORMATION
  Report Type: 
  Country: None (occurrence: None)
  Receive Date: 20120128
  Receipt Date: 20110511
  Transmission Date: 20120608
  Serious: No
  Sender: FDA-Public Use
  Company Number: US-ABBOTT-11P-163-0725067-00

PATIENT
  Age: 28 Year
  Sex: Female

DRUGS (6)
  1. HUMIRA [Suspect]
     Indication: PSORIASIS
     Dosage: LOADING DOSE
     Dates: start: 20110511
  2. HUMIRA [Suspect]
     Indication: RHEUMATOID ARTHRITIS
  3. NAPROSYN [Concomitant]
     Indication: PAIN
     Dosage: 500MG DAILY
  4. ZOLOFT [Concomitant]
     Indication: DEPRESSION
     Dosage: 50MG DAILY
  5. YAZ [Concomitant]
     Indication: PRODUCT USED FOR UNKNOWN INDICATION
     Dosage: BIRTH CONTROL PILLS
  6. VITAMIN TAB [Concomitant]
     Indication: PRODUCT USED FOR UNKNOWN INDICATION
     Dosage: DAILY

REACTIONS (2)
  - INJECTION SITE PAIN [None]
  - INJECTION SITE PAPULE [None]
